FAERS Safety Report 4710767-0 (Version None)
Quarter: 2005Q3

REPORT INFORMATION
  Report Type: 
  Country: None (occurrence: None)
  Receive Date: 20050707
  Receipt Date: 20050621
  Transmission Date: 20060218
  Serious: Yes (Hospitalization, Disabling)
  Sender: FDA-Public Use
  Company Number: EWC030936145

PATIENT
  Age: 62 Year
  Sex: Female
  Weight: 78 kg

DRUGS (15)
  1. HUMULIN N [Suspect]
     Indication: DIABETES MELLITUS
     Dosage: 35 IU/2 DAY
     Dates: start: 20030508
  2. CAPTOPRIL [Concomitant]
  3. DIGOXIN [Concomitant]
  4. FUROSEMIDE [Concomitant]
  5. AMIODARONE HCL [Concomitant]
  6. SPIRONOLACTONE [Concomitant]
  7. FLUVASTATIN [Concomitant]
  8. BISOPROLOL [Concomitant]
  9. ACENOCOUMAROL [Concomitant]
  10. ASPIRIN [Concomitant]
  11. BISOPROLOL FUMARATE [Concomitant]
  12. CAPOTEN (CAPTOPRIL BIOCHEMIE) [Concomitant]
  13. SINTROM [Concomitant]
  14. VENTOLIN (SALBUTAMOL SULFATE) [Concomitant]
  15. CITRIZINE [Concomitant]

REACTIONS (20)
  - ANAEMIA [None]
  - ANGIOPATHY [None]
  - ATRIAL FIBRILLATION [None]
  - ATRIOVENTRICULAR BLOCK COMPLETE [None]
  - BRADYCARDIA [None]
  - CELLULITIS [None]
  - CEREBRAL ATROPHY [None]
  - DEAFNESS UNILATERAL [None]
  - DIZZINESS [None]
  - DYSPNOEA [None]
  - FALL [None]
  - HAEMATOMA [None]
  - HEAD INJURY [None]
  - PLEURAL EFFUSION [None]
  - PULMONARY CONGESTION [None]
  - PYREXIA [None]
  - SYNCOPE [None]
  - THERAPEUTIC AGENT TOXICITY [None]
  - TINNITUS [None]
  - VENTRICULAR EXTRASYSTOLES [None]
